FAERS Safety Report 15611086 (Version 1)
Quarter: 2018Q4

REPORT INFORMATION
  Report Type: Spontaneous
  Country: US (occurrence: US)
  Receive Date: 20181113
  Receipt Date: 20181113
  Transmission Date: 20190205
  Serious: No
  Sender: FDA-Public Use
  Company Number: US-ROCHE-2070030

PATIENT

DRUGS (1)
  1. TAMIFLU [Suspect]
     Active Substance: OSELTAMIVIR PHOSPHATE
     Indication: INFLUENZA
     Dosage: ONGOING:NO
     Route: 065

REACTIONS (2)
  - Visual impairment [Unknown]
  - Epistaxis [Unknown]
